FAERS Safety Report 12398165 (Version 1)
Quarter: 2016Q2

REPORT INFORMATION
  Report Type: Spontaneous
  Country: US (occurrence: US)
  Receive Date: 20160524
  Receipt Date: 20160524
  Transmission Date: 20160815
  Serious: Yes (Other)
  Sender: FDA-Public Use
  Company Number: US-TEVA-660382USA

PATIENT
  Age: 46 Year
  Sex: Female

DRUGS (1)
  1. ZECUITY [Suspect]
     Active Substance: SUMATRIPTAN SUCCINATE
     Route: 062
     Dates: start: 20160512, end: 20160512

REACTIONS (3)
  - Product physical issue [Unknown]
  - Application site burn [Unknown]
  - Application site paraesthesia [Unknown]

NARRATIVE: CASE EVENT DATE: 20160512
